FAERS Safety Report 25651755 (Version 1)
Quarter: 2025Q3

REPORT INFORMATION
  Report Type: Other
  Country: US (occurrence: US)
  Receive Date: 20250806
  Receipt Date: 20250806
  Transmission Date: 20251021
  Serious: Yes (Other)
  Sender: EVOKE PHARMA
  Company Number: US-EVOKE PHARMA, INC.-2024EVO000068

PATIENT
  Sex: Female

DRUGS (1)
  1. METOCLOPRAMIDE HYDROCHLORIDE [Suspect]
     Active Substance: METOCLOPRAMIDE HYDROCHLORIDE
     Indication: Product used for unknown indication
     Route: 065

REACTIONS (1)
  - Tremor [Unknown]
